FAERS Safety Report 7332507-1 (Version None)
Quarter: 2011Q1

REPORT INFORMATION
  Report Type: 
  Country: None (occurrence: None)
  Receive Date: 20110304
  Receipt Date: 20110301
  Transmission Date: 20110831
  Serious: Yes (Life-Threatening)
  Sender: FDA-Public Use
  Company Number: FR-ROCHE-763044

PATIENT
  Age: 46 Year
  Sex: Female

DRUGS (1)
  1. BEVACIZUMAB [Suspect]
     Indication: COLORECTAL CANCER
     Route: 065
     Dates: start: 20090406

REACTIONS (2)
  - RESPIRATORY DISTRESS [None]
  - SEPTIC SHOCK [None]
